FAERS Safety Report 9335400 (Version 2)
Quarter: 2013Q2

REPORT INFORMATION
  Report Type: Spontaneous
  Country: US (occurrence: US)
  Receive Date: 20130605
  Receipt Date: 20130618
  Transmission Date: 20140414
  Serious: Yes (Hospitalization)
  Sender: FDA-Public Use
  Company Number: US-GILEAD-2013-0076497

PATIENT
  Age: 55 Year
  Sex: Male

DRUGS (5)
  1. LETAIRIS [Suspect]
     Indication: PULMONARY HYPERTENSION
     Dosage: 5 MG, QD
     Route: 048
     Dates: start: 2002
  2. LETAIRIS [Suspect]
     Indication: SARCOIDOSIS
  3. COUMADIN                           /00014802/ [Concomitant]
  4. REMODULIN [Concomitant]
  5. ADCIRCA [Concomitant]

REACTIONS (1)
  - Pneumonia [Unknown]
